FAERS Safety Report 15131307 (Version 2)
Quarter: 2019Q4

REPORT INFORMATION
  Report Type: Spontaneous
  Country: FR (occurrence: FR)
  Receive Date: 20180711
  Receipt Date: 20191220
  Transmission Date: 20200122
  Serious: Yes (Death)
  Sender: FDA-Public Use
  Company Number: FR-PFIZER INC-2018273427

PATIENT
  Age: 14 Year
  Sex: Female
  Weight: 55 kg

DRUGS (13)
  1. OROZAMUDOL [Concomitant]
     Active Substance: TRAMADOL
  2. BACTRIM [Concomitant]
     Active Substance: SULFAMETHOXAZOLE\TRIMETHOPRIM
     Dosage: UNK
  3. COSMEGEN [Suspect]
     Active Substance: DACTINOMYCIN
     Indication: RHABDOMYOSARCOMA
     Dosage: 1500 UG, SINGLE
     Route: 042
     Dates: start: 20170728, end: 20170728
  4. EMEND [Concomitant]
     Active Substance: APREPITANT
     Dosage: UNK
  5. HOLOXAN [Suspect]
     Active Substance: IFOSFAMIDE
     Indication: RHABDOMYOSARCOMA
     Dosage: 5 G, SINGLE
     Route: 042
     Dates: start: 20170728, end: 20170728
  6. PRINCI B [Concomitant]
     Dosage: UNK
  7. SOLUPRED [PREDNISOLONE] [Concomitant]
     Active Substance: PREDNISOLONE
  8. MESNA. [Concomitant]
     Active Substance: MESNA
     Dosage: UNK
  9. DOLIPRANE [Concomitant]
     Active Substance: ACETAMINOPHEN
     Dosage: UNK
  10. VINCRISTINE SULFATE. [Suspect]
     Active Substance: VINCRISTINE SULFATE
     Indication: RHABDOMYOSARCOMA
     Dosage: 2 MG, SINGLE
     Route: 042
     Dates: start: 20170728, end: 20170728
  11. GLUCIDION [Concomitant]
     Active Substance: GLUCOSE, LIQUID\POTASSIUM CHLORIDE\SODIUM CHLORIDE
     Dosage: UNK
  12. ZOPHREN [ONDANSETRON HYDROCHLORIDE] [Concomitant]
     Active Substance: ONDANSETRON
     Dosage: UNK
  13. PHOCYTAN [Concomitant]
     Active Substance: .ALPHA.-GLUCOSE-1-PHOSPHATE
     Dosage: UNK

REACTIONS (1)
  - Encephalopathy [Fatal]

NARRATIVE: CASE EVENT DATE: 20170729
